FAERS Safety Report 21384097 (Version 1)
Quarter: 2022Q3

REPORT INFORMATION
  Report Type: Spontaneous
  Country: CN (occurrence: CN)
  Receive Date: 20220928
  Receipt Date: 20220928
  Transmission Date: 20221027
  Serious: Yes (Other)
  Sender: FDA-Public Use
  Company Number: CN-BAYER-2022A133505

PATIENT
  Age: 61 Year
  Sex: Male

DRUGS (4)
  1. XARELTO [Suspect]
     Active Substance: RIVAROXABAN
     Indication: Bone operation
     Dosage: 10 MG, QD
     Route: 048
     Dates: start: 20220707, end: 20220915
  2. ASPIRIN [Suspect]
     Active Substance: ASPIRIN
     Indication: Symptomatic treatment
     Dosage: 100 MG, QD
     Route: 048
     Dates: start: 20220808, end: 20220906
  3. OLANZAPINE [Concomitant]
     Active Substance: OLANZAPINE
     Indication: Mental disorder
     Dosage: 5 MG, QD
     Route: 048
     Dates: start: 20220707, end: 20220915
  4. CALCIUM [Concomitant]
     Active Substance: CALCIUM
     Indication: Calcium deficiency
     Dosage: 100 MG, QD
     Route: 048
     Dates: start: 20220707, end: 20220915

REACTIONS (3)
  - Renal impairment [Unknown]
  - Sinus bradycardia [Unknown]
  - Hepatic function abnormal [Recovering/Resolving]

NARRATIVE: CASE EVENT DATE: 20220808
